FAERS Safety Report 5344982-2 (Version None)
Quarter: 2007Q2

REPORT INFORMATION
  Report Type: 
  Country: None (occurrence: None)
  Receive Date: 20070416
  Receipt Date: 20061220
  Transmission Date: 20071010
  Serious: No
  Sender: FDA-Public Use
  Company Number: 2006SP004442

PATIENT
  Age: 44 Year
  Sex: Male
  Weight: 85.2762 kg

DRUGS (9)
  1. LUNESTA [Suspect]
     Indication: INSOMNIA
     Dosage: SEE IMAGE
     Route: 048
     Dates: start: 20060101, end: 20060101
  2. LUNESTA [Suspect]
     Indication: INSOMNIA
     Dosage: SEE IMAGE
     Route: 048
     Dates: start: 20060101, end: 20060101
  3. ATRIPLA [Suspect]
     Indication: HIV TEST POSITIVE
     Dosage: ORAL
     Route: 048
     Dates: start: 20060101
  4. LEXAPRO [Concomitant]
  5. EFAVIRENZ [Concomitant]
  6. EMTRICITABINE [Concomitant]
  7. TENOFOVIR [Concomitant]
  8. SORIATANE [Concomitant]
  9. TRAZODONE HCL [Suspect]
     Indication: INSOMNIA
     Dosage: ORAL
     Route: 048
     Dates: start: 20060101

REACTIONS (3)
  - HALLUCINATION, VISUAL [None]
  - INSOMNIA [None]
  - PARANOIA [None]
